FAERS Safety Report 16684577 (Version 1)
Quarter: 2019Q3

REPORT INFORMATION
  Report Type: Spontaneous
  Country: US (occurrence: US)
  Receive Date: 20190808
  Receipt Date: 20190808
  Transmission Date: 20191004
  Serious: No
  Sender: FDA-Public Use
  Company Number: US-TEVA-2019-US-1087457

PATIENT
  Age: 60 Year
  Sex: Female

DRUGS (1)
  1. LORAZEPAM 2MG TEVA [Suspect]
     Active Substance: LORAZEPAM
     Indication: ANXIETY
     Route: 065
     Dates: start: 20190427

REACTIONS (4)
  - Product odour abnormal [Unknown]
  - Drug ineffective [Unknown]
  - Abdominal pain upper [Unknown]
  - Feeling abnormal [Unknown]

NARRATIVE: CASE EVENT DATE: 20190427
